FAERS Safety Report 24992693 (Version 1)
Quarter: 2025Q1

REPORT INFORMATION
  Report Type: Spontaneous
  Country: CA (occurrence: CA)
  Receive Date: 20250221
  Receipt Date: 20250221
  Transmission Date: 20250409
  Serious: Yes (Hospitalization)
  Sender: Steriscience PTE
  Company Number: CA-STERISCIENCE B.V.-2025-ST-000271

PATIENT
  Age: 97 Year
  Sex: Female

DRUGS (1)
  1. BUPIVACAINE [Suspect]
     Active Substance: BUPIVACAINE
     Indication: Spinal anaesthesia
     Route: 065

REACTIONS (1)
  - Respiratory disorder [Unknown]
